FAERS Safety Report 8619047 (Version 2)
Quarter: 2012Q4

REPORT INFORMATION
  Report Type: Report from Study
  Country: FR (occurrence: FR)
  Receive Date: 20120618
  Receipt Date: 20121101
  Transmission Date: 20130627
  Serious: Yes (Hospitalization)
  Sender: FDA-Public Use
  Company Number: PHHO2012FR008912

PATIENT
  Age: 63 Year
  Sex: Male

DRUGS (3)
  1. RAD 666 / RAD 001A [Suspect]
     Indication: RENAL TRANSPLANT
     Dosage: 6 mg, QD
     Route: 048
     Dates: start: 20120521, end: 20120608
  2. CELLCEPT [Concomitant]
     Indication: RENAL TRANSPLANT
     Dosage: 3 g, QD
     Route: 048
     Dates: start: 20120517, end: 20120608
  3. SOLUPRED [Concomitant]
     Indication: RENAL TRANSPLANT
     Dosage: 50 mg, QD
     Route: 048
     Dates: start: 20120517

REACTIONS (3)
  - Small intestinal obstruction [Recovered/Resolved]
  - Thrombocytopenia [Recovered/Resolved]
  - Leukopenia [Recovered/Resolved]
